FAERS Safety Report 9476656 (Version 1)
Quarter: 2013Q3

REPORT INFORMATION
  Report Type: Spontaneous
  Country: US (occurrence: US)
  Receive Date: 20130826
  Receipt Date: 20130826
  Transmission Date: 20140515
  Serious: No
  Sender: FDA-Public Use
  Company Number: US-BRISTOL-MYERS SQUIBB COMPANY-18733170

PATIENT
  Age: 64 Year
  Sex: Female
  Weight: 74.83 kg

DRUGS (2)
  1. KENALOG INJ [Suspect]
     Indication: BURSITIS
     Dosage: RECEIVED ON BOTH SHOULDERS.
     Dates: start: 20130326
  2. KENALOG INJ [Suspect]
     Indication: MUSCULOSKELETAL PAIN
     Dosage: RECEIVED ON BOTH SHOULDERS.
     Dates: start: 20130326

REACTIONS (2)
  - Hot flush [Unknown]
  - Poor quality sleep [Unknown]
